FAERS Safety Report 9223111 (Version 1)
Quarter: 2013Q1

REPORT INFORMATION
  Report Type: Spontaneous
  Country: US (occurrence: None)
  Receive Date: 20120914
  Receipt Date: 20120914
  Transmission Date: 20140127
  Serious: Yes (Hospitalization)
  Sender: FDA-Public Use
  Company Number: JPI-P-017560

PATIENT
  Age: 39 Year
  Sex: Female
  Weight: 78.02 kg

DRUGS (3)
  1. XYREM (500 MILLIGRAM/MILLILITERS, SOLUTION) (SODIUM OXYBATE) [Suspect]
     Indication: NARCOLEPSY
     Dosage: 4.5GM (2.25GM, 2 IN 1 D), ORAL
     Route: 048
     Dates: start: 20111002, end: 20111003
  2. NUVIGIL (MODAFINIL) [Concomitant]
  3. CELEXA (CITALOPRAM) [Concomitant]

REACTIONS (4)
  - Pneumonia [None]
  - Headache [None]
  - Nausea [None]
  - Dizziness [None]
